FAERS Safety Report 4267080-8 (Version None)
Quarter: 2004Q1

REPORT INFORMATION
  Report Type: 
  Country: None (occurrence: None)
  Receive Date: 20040107
  Receipt Date: 20031230
  Transmission Date: 20041129
  Serious: Yes (Death)
  Sender: FDA-Public Use
  Company Number: 163-20785-03110092

PATIENT
  Age: 44 Year
  Sex: Male

DRUGS (1)
  1. THALOMID [Suspect]
     Indication: MULTIPLE MYELOMA
     Dosage: 200-100 MG, DAILY, ORAL
     Route: 048
     Dates: start: 20030513, end: 20030820

REACTIONS (1)
  - ACUTE MYOCARDIAL INFARCTION [None]
